FAERS Safety Report 8849476 (Version 3)
Quarter: 2013Q3

REPORT INFORMATION
  Report Type: Report from Study
  Country: JP (occurrence: JP)
  Receive Date: 20121019
  Receipt Date: 20130918
  Transmission Date: 20140515
  Serious: Yes (Hospitalization)
  Sender: FDA-Public Use
  Company Number: JP-VERTEX PHARMACEUTICAL INC.-AE-2012-006049

PATIENT
  Age: 65 Year
  Sex: Male

DRUGS (9)
  1. VX-950 (TELAPREVIR) [Suspect]
     Indication: CHRONIC HEPATITIS C
     Dosage: 2250 MG, QD
     Route: 048
     Dates: start: 20120410, end: 20120417
  2. PEGINTRON [Suspect]
     Indication: CHRONIC HEPATITIS C
     Dosage: 1.5 ?G/KG, QW
     Route: 058
     Dates: start: 20120410, end: 20120419
  3. REBETOL [Suspect]
     Indication: CHRONIC HEPATITIS C
     Dosage: 800 MG, QD
     Route: 048
     Dates: start: 20120410, end: 20120419
  4. PURSENNID [Concomitant]
     Dosage: UNK
     Route: 048
     Dates: start: 20120413
  5. DIPEPTIDYL PEPTIDASE 4 (DPP-4) INHIBITORS [Concomitant]
     Dosage: UNK
     Dates: start: 20120425
  6. MEDET [Concomitant]
     Dosage: 2 DF, QD
     Route: 048
  7. AMARYL [Concomitant]
     Dosage: 2 MG, QD
     Route: 048
     Dates: end: 20120424
  8. AMARYL [Concomitant]
     Dosage: 1 MG, QD
     Dates: start: 20120425, end: 20120514
  9. NESINA [Concomitant]
     Dosage: 25 MG, QD
     Route: 048
     Dates: start: 20120425, end: 20120514

REACTIONS (1)
  - Renal failure acute [Not Recovered/Not Resolved]
